FAERS Safety Report 11773857 (Version 2)
Quarter: 2016Q2

REPORT INFORMATION
  Report Type: Spontaneous
  Country: GB (occurrence: GB)
  Receive Date: 20151124
  Receipt Date: 20160610
  Transmission Date: 20160815
  Serious: Yes (Life-Threatening, Hospitalization)
  Sender: FDA-Public Use
  Company Number: GB-OTSUKA-2015_015052

PATIENT
  Age: 61 Year
  Sex: Female
  Weight: 83.9 kg

DRUGS (27)
  1. CYTARABINE. [Suspect]
     Active Substance: CYTARABINE
     Indication: STEM CELL TRANSPLANT
     Dosage: 1 G/M2, QD (1/DAY)
     Route: 042
     Dates: start: 20151006, end: 20151009
  2. AMBISONE [Concomitant]
     Active Substance: AMPHOTERICIN B
     Indication: FUNGAL INFECTION
     Dosage: UNK
     Route: 065
     Dates: start: 20151017, end: 20151019
  3. PREDNISOLONE. [Concomitant]
     Active Substance: PREDNISOLONE
     Indication: EYE INFLAMMATION
     Dosage: UNK
     Route: 065
     Dates: start: 20151005, end: 20151014
  4. METOCLOPRAMIDE. [Concomitant]
     Active Substance: METOCLOPRAMIDE
     Indication: NAUSEA
     Dosage: UNK
     Route: 065
     Dates: start: 20151005, end: 20151019
  5. PARACETAMOL [Concomitant]
     Active Substance: ACETAMINOPHEN
     Indication: ANALGESIC THERAPY
     Dosage: UNK
     Route: 065
     Dates: start: 20151005, end: 20151005
  6. BUSULFAN. [Suspect]
     Active Substance: BUSULFAN
     Indication: STEM CELL TRANSPLANT
     Dosage: 3.2 MG/KG, QD (1/DAY)
     Route: 042
     Dates: start: 20151012, end: 20151013
  7. CHLORHEXIDINE [Concomitant]
     Active Substance: CHLORHEXIDINE
     Indication: PRODUCT USED FOR UNKNOWN INDICATION
     Dosage: UNK
     Route: 065
     Dates: start: 20151005, end: 20151019
  8. CICLOSPORIN [Concomitant]
     Active Substance: CYCLOSPORINE
     Indication: TRANSPLANT
     Dosage: UNK
     Route: 065
     Dates: start: 20151015
  9. MYCOPHENOLATE MOFETIL. [Concomitant]
     Active Substance: MYCOPHENOLATE MOFETIL
     Indication: TRANSPLANT
     Dosage: UNK
     Route: 065
     Dates: start: 20151016, end: 20151020
  10. CHLORPHENIRAMINE. [Concomitant]
     Active Substance: CHLORPHENIRAMINE
     Indication: ANTIALLERGIC THERAPY
     Dosage: UNK
     Route: 065
     Dates: start: 20151012, end: 20151019
  11. ZOPICLONE [Concomitant]
     Active Substance: ZOPICLONE
     Indication: INSOMNIA
     Dosage: UNK
     Route: 065
     Dates: start: 20151006, end: 20151010
  12. TAZOCIN [Concomitant]
     Active Substance: PIPERACILLIN SODIUM\TAZOBACTAM SODIUM
     Indication: IMMUNOSUPPRESSION
     Dosage: UNK
     Route: 065
     Dates: start: 20151008, end: 20151013
  13. AMSACRINE [Suspect]
     Active Substance: AMSACRINE
     Indication: STEM CELL TRANSPLANT
     Dosage: 100 MG/M2, QD (1/DAY)
     Route: 042
     Dates: start: 20151006, end: 20151009
  14. FOLIC ACID. [Concomitant]
     Active Substance: FOLIC ACID
     Indication: BLOOD FOLATE DECREASED
     Dosage: UNK
     Route: 065
     Dates: start: 20151005, end: 20151019
  15. COTRIMOXAZOLE [Concomitant]
     Active Substance: SULFAMETHOXAZOLE\TRIMETHOPRIM
     Indication: PROPHYLAXIS
     Dosage: UNK
     Route: 065
     Dates: start: 20151005, end: 20151010
  16. URSODEOXYCHOLIC ACID [Concomitant]
     Active Substance: URSODIOL
     Dosage: UNK
     Route: 065
     Dates: start: 20151008, end: 20151019
  17. FLUDARABINE [Suspect]
     Active Substance: FLUDARABINE PHOSPHATE
     Indication: STEM CELL TRANSPLANT
     Dosage: 30 MG/M2, QD (1/DAY)
     Route: 042
     Dates: start: 20151006, end: 20151014
  18. CITALOPRAM [Concomitant]
     Active Substance: CITALOPRAM HYDROBROMIDE
     Indication: DEPRESSION
     Dosage: UNK
     Route: 065
     Dates: start: 20151006, end: 20151019
  19. POSACONAZOLE [Concomitant]
     Active Substance: POSACONAZOLE
     Indication: ANTIFUNGAL TREATMENT
     Dosage: UNK
     Route: 065
     Dates: start: 20151008, end: 20151011
  20. UROKINASE [Concomitant]
     Active Substance: UROKINASE
     Indication: THROMBOSIS PROPHYLAXIS
     Dosage: 5000 UNITS/ML
     Route: 065
     Dates: start: 20151006, end: 20151010
  21. LEVOMEPROMAZINE MALEATE [Concomitant]
     Active Substance: LEVOMEPROMAZINE MALEATE
     Indication: PAIN
     Dosage: UNK
     Route: 065
     Dates: start: 20151013, end: 20151017
  22. LEVOMEPROMAZINE MALEATE [Concomitant]
     Active Substance: LEVOMEPROMAZINE MALEATE
     Indication: MALAISE
  23. MEROPENEM. [Concomitant]
     Active Substance: MEROPENEM
     Indication: SEPSIS
     Dosage: UNK
     Route: 065
     Dates: start: 20151014, end: 20151019
  24. SODIUM CHLORIDE. [Concomitant]
     Active Substance: SODIUM CHLORIDE
     Indication: PRODUCT USED FOR UNKNOWN INDICATION
     Dosage: UNK
     Route: 065
     Dates: start: 20151015, end: 20151019
  25. ACICLOVIR [Concomitant]
     Active Substance: ACYCLOVIR
     Indication: PROPHYLAXIS
     Dosage: UNK
     Route: 065
  26. ONDANSETRON [Concomitant]
     Active Substance: ONDANSETRON
     Indication: NAUSEA
     Dosage: UNK
     Route: 065
     Dates: start: 20151005, end: 20151010
  27. LANSOPRAZOLE. [Concomitant]
     Active Substance: LANSOPRAZOLE
     Indication: PLATELET COUNT DECREASED
     Dosage: UNK
     Route: 065
     Dates: start: 20151005, end: 20151019

REACTIONS (4)
  - Bone lesion [Recovered/Resolved]
  - Appendicitis [Recovered/Resolved]
  - Neutropenia [Recovered/Resolved]
  - Hiatus hernia [Recovered/Resolved]

NARRATIVE: CASE EVENT DATE: 20151020
